FAERS Safety Report 26169106 (Version 1)
Quarter: 2025Q4

REPORT INFORMATION
  Report Type: Spontaneous
  Country: US (occurrence: None)
  Receive Date: 20251216
  Receipt Date: 20251216
  Transmission Date: 20260117
  Serious: Yes (Death)
  Sender: FDA-CTU
  Company Number: None

PATIENT
  Age: 68 Year
  Sex: Male

DRUGS (5)
  1. ALBUTEROL SULFATE\IPRATROPIUM BROMIDE [Suspect]
     Active Substance: ALBUTEROL SULFATE\IPRATROPIUM BROMIDE
     Dosage: 0.5-2.5 MG (3) 3ML: INHLE 3ML VIA NEBULIZER THREE TIMES DAILY AS NEEDED   INHALATION
     Route: 055
     Dates: start: 20250829
  2. ALBUTEROL 90MCG INH [Concomitant]
  3. ASPIRIN TAB 81MG EC [Concomitant]
  4. OFEV 150 MG CAP [Concomitant]
  5. TRELEGY ELPTA 100/62.5/25MCG [Concomitant]

REACTIONS (1)
  - Death [None]

NARRATIVE: CASE EVENT DATE: 20251215
